FAERS Safety Report 14726380 (Version 4)
Quarter: 2018Q4

REPORT INFORMATION
  Report Type: Spontaneous
  Country: FR (occurrence: FR)
  Receive Date: 20180406
  Receipt Date: 20181005
  Transmission Date: 20190204
  Serious: Yes (Other)
  Sender: FDA-Public Use
  Company Number: FR-AUROBINDO-AUR-APL-2018-017828

PATIENT
  Sex: Female

DRUGS (18)
  1. PREDNISONE. [Suspect]
     Active Substance: PREDNISONE
     Dosage: 54 MILLIGRAM, ONCE A DAY
     Route: 048
     Dates: start: 20180224, end: 20180316
  2. PREDNISOLONE. [Suspect]
     Active Substance: PREDNISOLONE
     Indication: ACUTE LYMPHOCYTIC LEUKAEMIA
     Dosage: UNK
     Route: 065
  3. METHOTREXATE. [Suspect]
     Active Substance: METHOTREXATE
     Dosage: 12 MILLIGRAM, ONCE A DAY
     Route: 037
     Dates: start: 20180221, end: 20180221
  4. DAUNORUBICIN [Suspect]
     Active Substance: DAUNORUBICIN
     Indication: ACUTE LYMPHOCYTIC LEUKAEMIA
     Dosage: 27 MILLIGRAM, DAILY
     Route: 042
     Dates: start: 20180224
  5. DAUNORUBICIN [Suspect]
     Active Substance: DAUNORUBICIN
     Dosage: 27 MILLIGRAM, ONCE A DAY
     Route: 042
     Dates: start: 20180224, end: 20180318
  6. CYTARABINE. [Suspect]
     Active Substance: CYTARABINE
     Dosage: 30 MILLIGRAM, ONCE A DAY
     Route: 037
     Dates: start: 20180227, end: 20180322
  7. PEGASPARGASE [Suspect]
     Active Substance: PEGASPARGASE
     Indication: ACUTE LYMPHOCYTIC LEUKAEMIA
     Dosage: 2250 INTERNATIONAL UNIT, DAILY
     Route: 042
     Dates: start: 20180228
  8. METHOTREXATE. [Suspect]
     Active Substance: METHOTREXATE
     Dosage: 12 MG, UNK
     Route: 037
     Dates: start: 20180221, end: 20180322
  9. HYDROCORTISONE. [Suspect]
     Active Substance: HYDROCORTISONE
     Indication: ACUTE LYMPHOCYTIC LEUKAEMIA
     Dosage: 15 MILLIGRAM, ONCE A DAY
     Route: 037
     Dates: start: 20180227
  10. CYTARABINE. [Suspect]
     Active Substance: CYTARABINE
     Indication: ACUTE LYMPHOCYTIC LEUKAEMIA
     Dosage: 30 MILLIGRAM, DAILY
     Route: 037
     Dates: start: 20180227
  11. HYDROCORTISONE. [Suspect]
     Active Substance: HYDROCORTISONE
     Dosage: 15 MILLIGRAM, ONCE A DAY
     Route: 037
     Dates: start: 20180227, end: 20180322
  12. METHOTREXATE. [Suspect]
     Active Substance: METHOTREXATE
     Indication: ACUTE LYMPHOCYTIC LEUKAEMIA
     Dosage: 12 MILLIGRAM, DAILY
     Route: 037
     Dates: start: 20180221
  13. METHOTREXATE. [Suspect]
     Active Substance: METHOTREXATE
     Dosage: 12 MG, UNK
     Route: 037
     Dates: start: 20180227
  14. PEGASPARGASE [Suspect]
     Active Substance: PEGASPARGASE
     Dosage: 2250 INTERNATIONAL UNIT, ONCE A DAY
     Route: 042
     Dates: start: 20180228, end: 20180314
  15. PREDNISONE. [Suspect]
     Active Substance: PREDNISONE
     Indication: ACUTE LYMPHOCYTIC LEUKAEMIA
     Dosage: 54 MILLIGRAM, DAILY
     Route: 048
     Dates: start: 20180217, end: 20180224
  16. DEXAMETHASONE. [Suspect]
     Active Substance: DEXAMETHASONE
     Indication: ACUTE LYMPHOCYTIC LEUKAEMIA
     Dosage: 54 MILLIGRAM, DAILY
     Route: 048
     Dates: start: 20180224
  17. VINCRISTINE [Suspect]
     Active Substance: VINCRISTINE
     Indication: ACUTE LYMPHOCYTIC LEUKAEMIA
     Dosage: 1.5 MILLIGRAM, DAILY
     Route: 042
     Dates: start: 20180224
  18. VINCRISTINE [Suspect]
     Active Substance: VINCRISTINE
     Dosage: 1.5 MILLIGRAM
     Route: 042
     Dates: start: 20180224, end: 20180318

REACTIONS (1)
  - Hepatocellular injury [Recovering/Resolving]

NARRATIVE: CASE EVENT DATE: 20180303
